FAERS Safety Report 18400437 (Version 2)
Quarter: 2020Q4

REPORT INFORMATION
  Report Type: Spontaneous
  Country: DK (occurrence: DK)
  Receive Date: 20201019
  Receipt Date: 20201028
  Transmission Date: 20210114
  Serious: Yes (Life-Threatening)
  Sender: FDA-Public Use
  Company Number: DK-PFIZER INC-2015149481

PATIENT
  Sex: Female

DRUGS (3)
  1. SYNTOCINON [Concomitant]
     Active Substance: OXYTOCIN
     Indication: INDUCED LABOUR
     Dosage: 0.1 ML/MIN, (10 I.E. IN A 1000 ML NACL-SOLUTION)
  2. MISOPROSTOL. [Suspect]
     Active Substance: MISOPROSTOL
     Indication: INDUCED LABOUR
     Dosage: 25 ?G, SINGLE
  3. SYNTOCINON [Concomitant]
     Active Substance: OXYTOCIN
     Dosage: 2.4 ML/MIN, (10 I.E. IN A 1000 ML NACL-SOLUTION)

REACTIONS (3)
  - Cerebral palsy [Unknown]
  - Foetal exposure during delivery [Unknown]
  - Bradycardia foetal [Unknown]
